FAERS Safety Report 26118262 (Version 1)
Quarter: 2025Q4

REPORT INFORMATION
  Report Type: Spontaneous
  Country: ID (occurrence: ID)
  Receive Date: 20251203
  Receipt Date: 20251203
  Transmission Date: 20260118
  Serious: Yes (Other)
  Sender: INCYTE
  Company Number: ID-002147023-NVSC2020ID129182

PATIENT

DRUGS (1)
  1. RUXOLITINIB [Suspect]
     Active Substance: RUXOLITINIB
     Indication: Product used for unknown indication
     Dosage: 50 MG; FREQUENCY 1 X 1; FOR 3 MONTHS
     Route: 065

REACTIONS (3)
  - Bone marrow failure [Unknown]
  - Nausea [Unknown]
  - Dyspnoea [Unknown]
